FAERS Safety Report 5825991-3 (Version None)
Quarter: 2008Q3

REPORT INFORMATION
  Report Type: 
  Country: None (occurrence: None)
  Receive Date: 20080729
  Receipt Date: 20080612
  Transmission Date: 20090109
  Serious: Yes (Other)
  Sender: FDA-Public Use
  Company Number: JP-SANOFI-SYNTHELABO-A01200808712

PATIENT
  Age: 89 Year
  Sex: Female

DRUGS (1)
  1. MYSLEE [Suspect]
     Indication: DRUG USE FOR UNKNOWN INDICATION
     Route: 048
     Dates: start: 20080101

REACTIONS (2)
  - DELIRIUM [None]
  - PORIOMANIA [None]
